FAERS Safety Report 5776139-5 (Version None)
Quarter: 2008Q2

REPORT INFORMATION
  Report Type: 
  Country: None (occurrence: None)
  Receive Date: 20080613
  Receipt Date: 20080530
  Transmission Date: 20081010
  Serious: Yes (Hospitalization)
  Sender: FDA-Public Use
  Company Number: DSA_31950_2008

PATIENT
  Sex: Female

DRUGS (5)
  1. LORAZEPAM [Suspect]
     Dosage: 20 MG 1X ORAL
     Route: 048
     Dates: start: 20080529, end: 20080529
  2. ETHANOL (ALCOHOL - ETHANOL) [Suspect]
     Dosage: ORAL
     Route: 048
     Dates: start: 20080529, end: 20080529
  3. DIAZEPAM [Suspect]
     Dosage: 10 MG 1X ORAL
     Route: 048
     Dates: start: 20080529, end: 20080529
  4. QUETIAPINE (SEROQUEL - QUETIAPINE) [Suspect]
     Dosage: ORAL
     Route: 048
  5. TREVILOR (TREVILOR - VENLAFAXINE HYDROCHLORIDE) (NOT SPECIFIED) [Suspect]
     Dosage: ORAL
     Route: 048
     Dates: start: 20080529, end: 20080529

REACTIONS (4)
  - ALCOHOL USE [None]
  - DRUG ABUSE [None]
  - MULTIPLE DRUG OVERDOSE INTENTIONAL [None]
  - VOMITING [None]
